FAERS Safety Report 5229057-5 (Version None)
Quarter: 2007Q1

REPORT INFORMATION
  Report Type: 
  Country: None (occurrence: None)
  Receive Date: 20061201
  Receipt Date: 20060802
  Transmission Date: 20070707
  Serious: No
  Sender: FDA-Public Use
  Company Number: US200608000772

PATIENT
  Age: 66 Year
  Sex: Female

DRUGS (5)
  1. CYMBALTA [Suspect]
     Indication: DEPRESSION
     Dosage: 30 MG,
     Dates: start: 20050101
  2. SOMA [Concomitant]
  3. VICODIN [Concomitant]
  4. ACETAMINOPHEN [Concomitant]
  5. ATIVAN [Concomitant]

REACTIONS (2)
  - CRYING [None]
  - HEADACHE [None]
